FAERS Safety Report 18072341 (Version 1)
Quarter: 2020Q3

REPORT INFORMATION
  Report Type: Spontaneous
  Country: US (occurrence: US)
  Receive Date: 20200727
  Receipt Date: 20200727
  Transmission Date: 20201103
  Serious: Yes (Life-Threatening, Hospitalization)
  Sender: FDA-Public Use
  Company Number: None

PATIENT
  Age: 73 Year
  Sex: Female
  Weight: 77 kg

DRUGS (2)
  1. FULVESTRANT (FULVESTRANT 50MG/ML, INJ SYRINGE,5ML) [Suspect]
     Active Substance: FULVESTRANT
     Indication: BREAST CANCER
     Dates: start: 20200406
  2. ALPELISIB (ALPELISIB 200MGX14/50MGX14 (250MG) TAB, ORAL PKT) [Suspect]
     Active Substance: ALPELISIB
     Indication: BREAST CANCER
     Dates: start: 20200406, end: 20200423

REACTIONS (1)
  - Hyperglycaemia [None]

NARRATIVE: CASE EVENT DATE: 20200423
